FAERS Safety Report 24427636 (Version 1)
Quarter: 2024Q4

REPORT INFORMATION
  Report Type: Other
  Country: US (occurrence: US)
  Receive Date: 20241011
  Receipt Date: 20241011
  Transmission Date: 20250114
  Serious: Yes (Other)
  Sender: YOUNGTECH PHARMACEUTICALS, INC
  Company Number: US-YoungTech Pharmaceuticals, Inc.-2162850

PATIENT
  Age: 69 Year
  Sex: Male
  Weight: 76.364 kg

DRUGS (7)
  1. METOPROLOL TARTRATE [Suspect]
     Active Substance: METOPROLOL TARTRATE
     Indication: Cardiac failure
  2. SACUBITRIL\VALSARTAN [Interacting]
     Active Substance: SACUBITRIL\VALSARTAN
  3. DULAGLUTIDE [Concomitant]
     Active Substance: DULAGLUTIDE
  4. EMPAGLIFLOZIN [Suspect]
     Active Substance: EMPAGLIFLOZIN
  5. EPLERENONE [Suspect]
     Active Substance: EPLERENONE
  6. VALSARTAN [Suspect]
     Active Substance: VALSARTAN
  7. TIRZEPATIDE [Interacting]
     Active Substance: TIRZEPATIDE

REACTIONS (4)
  - Blood pressure systolic decreased [Recovered/Resolved]
  - Product use in unapproved indication [Unknown]
  - Drug interaction [Unknown]
  - Hypovolaemia [Recovered/Resolved]
